FAERS Safety Report 25543019 (Version 1)
Quarter: 2025Q3

REPORT INFORMATION
  Report Type: Spontaneous
  Country: US (occurrence: US)
  Receive Date: 20250711
  Receipt Date: 20250711
  Transmission Date: 20251020
  Serious: Yes (Life-Threatening, Hospitalization)
  Sender: MYLAN
  Company Number: US-MYLANLABS-2025M1057764

PATIENT
  Age: 60 Year
  Sex: Female

DRUGS (12)
  1. GABAPENTIN [Suspect]
     Active Substance: GABAPENTIN
     Indication: Product used for unknown indication
  2. GABAPENTIN [Suspect]
     Active Substance: GABAPENTIN
     Route: 065
  3. GABAPENTIN [Suspect]
     Active Substance: GABAPENTIN
     Route: 065
  4. GABAPENTIN [Suspect]
     Active Substance: GABAPENTIN
  5. QUETIAPINE [Suspect]
     Active Substance: QUETIAPINE
     Indication: Product used for unknown indication
  6. QUETIAPINE [Suspect]
     Active Substance: QUETIAPINE
     Route: 065
  7. QUETIAPINE [Suspect]
     Active Substance: QUETIAPINE
     Route: 065
  8. QUETIAPINE [Suspect]
     Active Substance: QUETIAPINE
  9. BUPROPION [Suspect]
     Active Substance: BUPROPION
     Indication: Product used for unknown indication
  10. BUPROPION [Suspect]
     Active Substance: BUPROPION
     Route: 065
  11. BUPROPION [Suspect]
     Active Substance: BUPROPION
     Route: 065
  12. BUPROPION [Suspect]
     Active Substance: BUPROPION

REACTIONS (12)
  - Neurotoxicity [Recovering/Resolving]
  - Cerebrovascular accident [Unknown]
  - Coma [Recovered/Resolved]
  - Hypotension [Unknown]
  - Areflexia [Recovering/Resolving]
  - Brain death [Unknown]
  - Shock [Unknown]
  - Intentional overdose [Recovering/Resolving]
  - Intentional product misuse [Recovering/Resolving]
  - Lactic acidosis [Unknown]
  - Myoclonus [Recovering/Resolving]
  - Seizure [Unknown]
